FAERS Safety Report 5275089-0 (Version None)
Quarter: 2007Q1

REPORT INFORMATION
  Report Type: 
  Country: None (occurrence: None)
  Receive Date: 20070326
  Receipt Date: 20070315
  Transmission Date: 20070707
  Serious: Yes (Other)
  Sender: FDA-Public Use
  Company Number: DE-JNJFOC-20070303601

PATIENT
  Age: 51 Year
  Sex: Female

DRUGS (8)
  1. RISPERDAL [Suspect]
     Indication: DRUG USE FOR UNKNOWN INDICATION
     Route: 048
  2. CYMBALTA [Interacting]
     Indication: DRUG USE FOR UNKNOWN INDICATION
     Route: 048
  3. DOXEPIN HCL [Interacting]
     Indication: DRUG USE FOR UNKNOWN INDICATION
     Route: 048
  4. LEPONEX [Concomitant]
     Route: 048
  5. LEPONEX [Concomitant]
     Route: 048
  6. LEPONEX [Concomitant]
     Route: 048
  7. ABILIFY [Concomitant]
     Route: 048
  8. GASTROZEPIN [Concomitant]
     Route: 048

REACTIONS (5)
  - CONVULSION [None]
  - DRUG INTERACTION [None]
  - HYPONATRAEMIA [None]
  - LOSS OF CONSCIOUSNESS [None]
  - SOMNOLENCE [None]
